FAERS Safety Report 23613771 (Version 2)
Quarter: 2024Q2

REPORT INFORMATION
  Report Type: Report from Study
  Country: CO (occurrence: CO)
  Receive Date: 20240310
  Receipt Date: 20240409
  Transmission Date: 20240715
  Serious: Yes (Hospitalization, Other)
  Sender: FDA-Public Use
  Company Number: CO-JNJFOC-20240257142

PATIENT
  Age: 73 Year
  Sex: Male
  Weight: 95 kg

DRUGS (2)
  1. ERLEADA [Suspect]
     Active Substance: APALUTAMIDE
     Indication: Hormone-dependent prostate cancer
     Dosage: 4 TABLETS DAILY
     Route: 048
     Dates: start: 20230615, end: 202403
  2. ERLEADA [Suspect]
     Active Substance: APALUTAMIDE
     Dosage: LAST ADMINISTRATION DATE MAR-2024
     Route: 048
     Dates: start: 202309

REACTIONS (16)
  - Diarrhoea [Recovering/Resolving]
  - Decreased appetite [Recovering/Resolving]
  - Fall [Recovering/Resolving]
  - Malnutrition [Recovering/Resolving]
  - Haemorrhage [Not Recovered/Not Resolved]
  - Nocturia [Recovering/Resolving]
  - Erythema [Not Recovered/Not Resolved]
  - Fluid retention [Not Recovered/Not Resolved]
  - Skin hyperpigmentation [Not Recovered/Not Resolved]
  - Acne [Not Recovered/Not Resolved]
  - Blister infected [Not Recovered/Not Resolved]
  - Pain in extremity [Not Recovered/Not Resolved]
  - Alopecia [Not Recovered/Not Resolved]
  - Discouragement [Unknown]
  - Rash pruritic [Not Recovered/Not Resolved]
  - Sensitive skin [Not Recovered/Not Resolved]

NARRATIVE: CASE EVENT DATE: 20230101
